FAERS Safety Report 12015165 (Version 1)
Quarter: 2016Q1

REPORT INFORMATION
  Report Type: Spontaneous
  Country: US (occurrence: US)
  Receive Date: 20160205
  Receipt Date: 20160205
  Transmission Date: 20160526
  Serious: No
  Sender: FDA-Public Use
  Company Number: US-AMGEN-USASP2015021540

PATIENT

DRUGS (8)
  1. NEULASTA [Suspect]
     Active Substance: PEGFILGRASTIM
     Indication: PRODUCT USED FOR UNKNOWN INDICATION
     Dosage: UNK
     Route: 065
  2. MIRALAX [Suspect]
     Active Substance: POLYETHYLENE GLYCOL 3350
     Indication: PRODUCT USED FOR UNKNOWN INDICATION
     Dosage: UNK
     Route: 065
  3. TAXOTERE [Concomitant]
     Active Substance: DOCETAXEL
     Indication: BREAST CANCER STAGE II
     Dosage: UNK
     Dates: start: 20141001
  4. LORATADINE. [Concomitant]
     Active Substance: LORATADINE
     Indication: HYPERSENSITIVITY
     Dosage: UNK
  5. LORATADINE. [Concomitant]
     Active Substance: LORATADINE
     Indication: PAIN
  6. PRILOSEC [Concomitant]
     Active Substance: OMEPRAZOLE MAGNESIUM
     Dosage: UNK
  7. ADRIAMYCIN [Concomitant]
     Active Substance: DOXORUBICIN HYDROCHLORIDE
     Indication: BREAST CANCER STAGE II
     Dosage: UNK
     Dates: start: 20141001
  8. CYTOXAN [Concomitant]
     Active Substance: CYCLOPHOSPHAMIDE
     Indication: BREAST CANCER STAGE II
     Dosage: UNK
     Dates: start: 20141001

REACTIONS (13)
  - Hypersensitivity [Unknown]
  - Fatigue [Unknown]
  - Oral pain [Unknown]
  - Arthropathy [Recovering/Resolving]
  - Injection site erythema [Not Recovered/Not Resolved]
  - Pain [Unknown]
  - Mood altered [Unknown]
  - Injection site reaction [Not Recovered/Not Resolved]
  - Constipation [Unknown]
  - Chest discomfort [Unknown]
  - Injection site bruising [Not Recovered/Not Resolved]
  - Dysgeusia [Recovering/Resolving]
  - Injection site exfoliation [Not Recovered/Not Resolved]
